FAERS Safety Report 21265239 (Version 1)
Quarter: 2022Q3

REPORT INFORMATION
  Report Type: Spontaneous
  Country: US (occurrence: None)
  Receive Date: 20220826
  Receipt Date: 20220826
  Transmission Date: 20221027
  Serious: Yes (Life-Threatening, Disabling, Other)
  Sender: FDA-Public Use
  Company Number: None

PATIENT
  Age: 56 Year
  Sex: Female
  Weight: 61.2 kg

DRUGS (3)
  1. CITROMA [Suspect]
     Active Substance: MAGNESIUM CITRATE
     Indication: Colonoscopy
     Dosage: OTHER QUANTITY : 296 296 ML;?OTHER FREQUENCY : ENTIRE BOTTLE 1 DO;?
     Route: 048
     Dates: start: 20220504, end: 20220504
  2. OXYCODENE [Concomitant]
  3. SEROQUEL [Concomitant]
     Active Substance: QUETIAPINE FUMARATE

REACTIONS (1)
  - Recalled product administered [None]

NARRATIVE: CASE EVENT DATE: 20220504
